FAERS Safety Report 4332222-2 (Version None)
Quarter: 2004Q1

REPORT INFORMATION
  Report Type: 
  Country: None (occurrence: None)
  Receive Date: 20040331
  Receipt Date: 20040311
  Transmission Date: 20041129
  Serious: Yes (Hospitalization)
  Sender: FDA-Public Use
  Company Number: FR_040203642

PATIENT
  Age: 62 Year
  Sex: Male

DRUGS (11)
  1. GEMZAR [Suspect]
     Indication: PANCREATIC CARCINOMA
     Dosage: 930 MG OTHER
     Route: 050
     Dates: start: 20031217, end: 20031226
  2. PIASCLEDINE [Concomitant]
  3. CORTICOIDS [Concomitant]
  4. NEORAL [Concomitant]
  5. PREDNISONE TAB [Concomitant]
  6. TENORMIN [Concomitant]
  7. PHYSIOTENS (MOXONIDINE) [Concomitant]
  8. LASIX [Concomitant]
  9. ALLOPURINOL [Concomitant]
  10. KARDEGIC (ACETYLSALICYLIC LYSINE) [Concomitant]
  11. PAROXETINE HCL [Concomitant]

REACTIONS (7)
  - ACUTE PULMONARY OEDEMA [None]
  - CHEST PAIN [None]
  - DYSPNOEA EXACERBATED [None]
  - INFECTION [None]
  - RENAL IMPAIRMENT [None]
  - RESPIRATORY DISTRESS [None]
  - SEPSIS [None]
